FAERS Safety Report 5210536-1 (Version None)
Quarter: 2007Q1

REPORT INFORMATION
  Report Type: 
  Country: None (occurrence: None)
  Receive Date: 20070117
  Receipt Date: 20070103
  Transmission Date: 20070707
  Serious: Yes (Hospitalization)
  Sender: FDA-Public Use
  Company Number: PHEH2007US00545

PATIENT
  Age: 50 Year
  Sex: Male

DRUGS (2)
  1. INTERLEUKIN-2 [Suspect]
     Indication: MALIGNANT MELANOMA
  2. MDX-010 [Suspect]
     Indication: METASTATIC MALIGNANT MELANOMA

REACTIONS (4)
  - DIARRHOEA [None]
  - HYPOTENSION [None]
  - LYMPHOPENIA [None]
  - MENTAL STATUS CHANGES [None]
